FAERS Safety Report 14850281 (Version 4)
Quarter: 2018Q3

REPORT INFORMATION
  Report Type: Spontaneous
  Country: IT (occurrence: IT)
  Receive Date: 20180505
  Receipt Date: 20180831
  Transmission Date: 20181010
  Serious: Yes (Other)
  Sender: FDA-Public Use
  Company Number: IT-AUROBINDO-AUR-APL-2018-024256

PATIENT
  Age: 20 Year
  Sex: Female

DRUGS (6)
  1. CLARITHROMYCIN. [Suspect]
     Active Substance: CLARITHROMYCIN
     Indication: HELICOBACTER INFECTION
     Dosage: 1 GRAM, ONCE A DAY
     Route: 048
     Dates: start: 20180301, end: 20180308
  2. AMOXICILLIN. [Suspect]
     Active Substance: AMOXICILLIN
     Indication: HELICOBACTER INFECTION
     Dosage: 2 GRAM, ONCE A DAY (QD)
     Route: 048
     Dates: start: 20180301, end: 20180308
  3. LEVOFLOXACIN. [Suspect]
     Active Substance: LEVOFLOXACIN
     Indication: HELICOBACTER INFECTION
     Dosage: 500 MILLIGRAM, ONCE A DAY
     Route: 048
     Dates: start: 20180301, end: 20180308
  4. TIROSINT [Concomitant]
     Active Substance: LEVOTHYROXINE SODIUM
     Indication: THYROIDITIS CHRONIC
     Dosage: 1 DOSAGE FORM
     Route: 048
     Dates: start: 20171220
  5. DIBASE [Concomitant]
     Active Substance: CHOLECALCIFEROL
     Indication: PRODUCT USED FOR UNKNOWN INDICATION
     Dosage: 1 DOSAGE FORM
     Route: 048
     Dates: start: 20170220
  6. OMEPRAZOLE. [Concomitant]
     Active Substance: OMEPRAZOLE
     Indication: PRODUCT USED FOR UNKNOWN INDICATION
     Dosage: 20 MILLIGRAM
     Route: 048
     Dates: start: 20180301, end: 20180308

REACTIONS (7)
  - Malaise [Recovered/Resolved]
  - Cough [Recovered/Resolved]
  - Abdominal pain upper [Recovered/Resolved]
  - Odynophagia [Recovered/Resolved]
  - Mucosal dryness [Recovered/Resolved]
  - Acquired macroglossia [Recovered/Resolved]
  - Dysphagia [Recovered/Resolved]

NARRATIVE: CASE EVENT DATE: 20180306
